FAERS Safety Report 21440632 (Version 1)
Quarter: 2022Q4

REPORT INFORMATION
  Report Type: Spontaneous
  Country: US (occurrence: US)
  Receive Date: 20221011
  Receipt Date: 20221011
  Transmission Date: 20230113
  Serious: Yes (Hospitalization)
  Sender: FDA-Public Use
  Company Number: US-RIGEL PHARMACEUTICALS, INC.-2022FOS000783

PATIENT
  Age: 71 Year
  Sex: Female
  Weight: 58.957 kg

DRUGS (12)
  1. TAVALISSE [Suspect]
     Active Substance: FOSTAMATINIB
     Indication: Immune thrombocytopenia
     Dosage: 150 MG, BID
     Route: 048
     Dates: start: 20220419
  2. TAVALISSE [Suspect]
     Active Substance: FOSTAMATINIB
     Dosage: 100 MG, BID
     Route: 048
     Dates: start: 20211029, end: 20211217
  3. SYMBICORT [Concomitant]
     Active Substance: BUDESONIDE\FORMOTEROL FUMARATE DIHYDRATE
     Indication: Product used for unknown indication
  4. MONTELUKAST [Concomitant]
     Active Substance: MONTELUKAST SODIUM
     Indication: Product used for unknown indication
  5. FEXOFENADINE [Concomitant]
     Active Substance: FEXOFENADINE HYDROCHLORIDE
     Indication: Product used for unknown indication
  6. VAGIFEM [Concomitant]
     Active Substance: ESTRADIOL
     Indication: Product used for unknown indication
  7. PROVENTIL [Concomitant]
     Active Substance: ALBUTEROL
     Indication: Product used for unknown indication
  8. MAGNESIUM CITRATE [Concomitant]
     Active Substance: MAGNESIUM CITRATE
     Indication: Product used for unknown indication
  9. FAMOTIDINE [Concomitant]
     Active Substance: FAMOTIDINE
     Indication: Product used for unknown indication
  10. DANAZOL [Concomitant]
     Active Substance: DANAZOL
     Indication: Product used for unknown indication
  11. NPLATE [Concomitant]
     Active Substance: ROMIPLOSTIM
     Indication: Product used for unknown indication
  12. CYCLOSPORINE [Concomitant]
     Active Substance: CYCLOSPORINE
     Indication: Product used for unknown indication

REACTIONS (1)
  - Duodenal ulcer haemorrhage [Unknown]

NARRATIVE: CASE EVENT DATE: 20220930
